FAERS Safety Report 16623107 (Version 1)
Quarter: 2019Q3

REPORT INFORMATION
  Report Type: Report from Study
  Country: ES (occurrence: ES)
  Receive Date: 20190723
  Receipt Date: 20190723
  Transmission Date: 20191004
  Serious: Yes (Hospitalization)
  Sender: FDA-Public Use
  Company Number: ES-TEVA-2019-ES-1080510

PATIENT
  Age: 97 Year
  Sex: Female

DRUGS (10)
  1. FUROSEMIDA 40 MG 30 COMPRIMIDOS [Concomitant]
     Route: 048
  2. GABAPENTINA 300 MG 90 CAPSULAS [Interacting]
     Active Substance: GABAPENTIN
     Dosage: 1 EVERY 12 HOURS
     Dates: start: 201705
  3. PANTOPRAZOL 40 MG 28 COMPRIMIDOS [Concomitant]
     Route: 048
  4. DOLOCATIL 1 G COMPRIMIDOS EFG, 40 COMPRIMIDOS [Concomitant]
     Active Substance: ACETAMINOPHEN
     Route: 048
  5. GABAPENTINA 300 MG 90 CAPSULAS [Suspect]
     Active Substance: GABAPENTIN
     Indication: AGITATION
     Route: 048
     Dates: start: 20171108, end: 20181113
  6. NOLOTIL 575 MG CAPSULAS DURAS, 20 CAPSULAS [Concomitant]
     Route: 048
  7. GABAPENTINA 300 MG 90 CAPSULAS [Interacting]
     Active Substance: GABAPENTIN
     Dosage: 2 EVERY 24 HOURS
     Dates: start: 201709
  8. SEROQUEL XR [Interacting]
     Active Substance: QUETIAPINE FUMARATE
     Indication: AGITATION
     Dosage: 0-0-1, IN MARCH 2018 SCHEDULED QUETIAPINE 25 (2 EVERY 24 HOURS), IN JUNE 2018 GUIDED QUETIAPINE 100,
     Route: 048
     Dates: start: 20181114, end: 201811
  9. OPTOVITE B12 1000 MICROGRAMOS SOLUCION INYECTABLE , 5 AMPOLLAS DE 2 ML [Concomitant]
     Route: 030
  10. GABAPENTINA 300 MG 90 CAPSULAS [Interacting]
     Active Substance: GABAPENTIN
     Indication: INSOMNIA
     Dosage: 0-0-2
     Route: 048
     Dates: start: 20181114, end: 20181120

REACTIONS (5)
  - Somnolence [Recovered/Resolved]
  - Dysarthria [Recovered/Resolved]
  - Hallucination [Recovered/Resolved]
  - Drug interaction [Unknown]
  - Feeding disorder [Recovered/Resolved]

NARRATIVE: CASE EVENT DATE: 201811
